FAERS Safety Report 7894368-1 (Version None)
Quarter: 2011Q4

REPORT INFORMATION
  Report Type: 
  Country: None (occurrence: None)
  Receive Date: 20111104
  Receipt Date: 20111024
  Transmission Date: 20120403
  Serious: Yes (Hospitalization)
  Sender: FDA-Public Use
  Company Number: CA-ROCHE-1008347

PATIENT
  Sex: Male

DRUGS (5)
  1. SINGULAIR [Concomitant]
  2. XOLAIR [Suspect]
     Indication: ASTHMA
     Route: 058
     Dates: start: 20100211
  3. SYMBICORT [Concomitant]
  4. SPIRIVA [Concomitant]
  5. VENTOLIN [Concomitant]

REACTIONS (3)
  - HEART RATE IRREGULAR [None]
  - DYSPNOEA [None]
  - CARDIAC DISORDER [None]
